FAERS Safety Report 26103381 (Version 2)
Quarter: 2025Q4

REPORT INFORMATION
  Report Type: Report from Study
  Country: EU (occurrence: None)
  Receive Date: 20251129
  Receipt Date: 20251218
  Transmission Date: 20260117
  Serious: Yes (Other)
  Sender: UCB
  Company Number: EU-UCBSA-2025075166

PATIENT
  Age: 52 Year

DRUGS (1)
  1. ROZANOLIXIZUMAB [Suspect]
     Active Substance: ROZANOLIXIZUMAB
     Indication: Myasthenia gravis
     Dosage: 4 MILLILITER

REACTIONS (2)
  - Asphyxia [Not Recovered/Not Resolved]
  - Therapeutic product effect incomplete [Unknown]
